FAERS Safety Report 16800998 (Version 1)
Quarter: 2019Q3

REPORT INFORMATION
  Report Type: Spontaneous
  Country: US (occurrence: US)
  Receive Date: 20190912
  Receipt Date: 20190912
  Transmission Date: 20191005
  Serious: No
  Sender: FDA-Public Use
  Company Number: US-ASTELLAS-2019US014533

PATIENT
  Sex: Male

DRUGS (1)
  1. XTANDI [Suspect]
     Active Substance: ENZALUTAMIDE
     Indication: PRODUCT USED FOR UNKNOWN INDICATION
     Route: 048
     Dates: end: 201903

REACTIONS (7)
  - Alopecia [Unknown]
  - Disturbance in attention [Unknown]
  - Confusional state [Unknown]
  - Anal incontinence [Unknown]
  - Lethargy [Unknown]
  - Disorientation [Unknown]
  - Product physical issue [Unknown]
